FAERS Safety Report 22335545 (Version 1)
Quarter: 2023Q2

REPORT INFORMATION
  Report Type: Spontaneous
  Country: DE (occurrence: DE)
  Receive Date: 20230518
  Receipt Date: 20230518
  Transmission Date: 20230722
  Serious: Yes (Life-Threatening, Hospitalization, Other)
  Sender: FDA-Public Use
  Company Number: None

PATIENT
  Age: 58 Year
  Sex: Female
  Weight: 80 kg

DRUGS (6)
  1. EBASTINE [Suspect]
     Active Substance: EBASTINE
     Indication: Suicide attempt
     Dosage: 19 TABLETS 1 DAY(S)
     Route: 048
     Dates: start: 20040328, end: 20040328
  2. EBASTINE [Suspect]
     Active Substance: EBASTINE
     Indication: Neurosis
  3. EBASTINE [Suspect]
     Active Substance: EBASTINE
     Indication: Neurosis
  4. LORMETAZEPAM [Suspect]
     Active Substance: LORMETAZEPAM
     Indication: Neurosis
     Dosage: 4 MG 1 DAY(S)
     Route: 048
     Dates: start: 20040328, end: 20040328
  5. LORMETAZEPAM [Suspect]
     Active Substance: LORMETAZEPAM
     Indication: Suicide attempt
  6. ALCOHOL [Suspect]
     Active Substance: ALCOHOL
     Indication: Suicide attempt
     Dosage: UNKNOWN UNKNOWN
     Route: 048

REACTIONS (5)
  - Somnolence [Recovered/Resolved]
  - Suicide attempt [Recovered/Resolved]
  - Intentional overdose [Recovered/Resolved]
  - Disorientation [Recovered/Resolved]
  - Anterograde amnesia [Recovered/Resolved]

NARRATIVE: CASE EVENT DATE: 20040328
